FAERS Safety Report 9091974 (Version 1)
Quarter: 2013Q1

REPORT INFORMATION
  Report Type: Spontaneous
  Country: FR (occurrence: FR)
  Receive Date: 20130131
  Receipt Date: 20130131
  Transmission Date: 20140127
  Serious: Yes (Hospitalization)
  Sender: FDA-Public Use
  Company Number: FR-PFIZER INC-2013031189

PATIENT
  Age: 36 Year
  Sex: Male

DRUGS (3)
  1. TAZOCILLINE [Suspect]
     Indication: PANCYTOPENIA
     Dosage: UNK
     Dates: start: 20120622, end: 20120630
  2. VANCOMYCIN HCL [Suspect]
     Indication: PANCYTOPENIA
     Dosage: UNK
     Dates: start: 20120623, end: 20120702
  3. GENTAMICIN [Suspect]
     Indication: PANCYTOPENIA
     Dosage: UNK
     Dates: start: 20120623, end: 20120625

REACTIONS (2)
  - Renal tubular necrosis [Recovered/Resolved]
  - Renal failure acute [Recovered/Resolved]
